FAERS Safety Report 6431961-7 (Version None)
Quarter: 2009Q4

REPORT INFORMATION
  Report Type: 
  Country: None (occurrence: None)
  Receive Date: 20091109
  Receipt Date: 20091026
  Transmission Date: 20100525
  Serious: Yes (Death, Hospitalization)
  Sender: FDA-Public Use
  Company Number: FR-JNJFOC-20091001960

PATIENT
  Age: 53 Year
  Sex: Male
  Weight: 115 kg

DRUGS (12)
  1. REMICADE [Suspect]
     Route: 042
  2. REMICADE [Suspect]
     Dosage: 5TH INFUSION
     Route: 042
  3. REMICADE [Suspect]
     Indication: PSORIATIC ARTHROPATHY
     Route: 042
  4. COUMADIN [Concomitant]
  5. APROVEL [Concomitant]
  6. LASILIX [Concomitant]
  7. PRAVASTATIN [Concomitant]
  8. ICAZ [Concomitant]
  9. METHOTREXATE [Concomitant]
  10. SPECIAFOLDINE [Concomitant]
  11. ARIXTRA [Concomitant]
  12. ISOPTIN [Concomitant]

REACTIONS (6)
  - ACUTE RESPIRATORY DISTRESS SYNDROME [None]
  - HOT FLUSH [None]
  - HYPOREFLEXIA [None]
  - PAIN IN EXTREMITY [None]
  - PNEUMONIA LEGIONELLA [None]
  - PSORIASIS [None]
